FAERS Safety Report 16064687 (Version 2)
Quarter: 2022Q3

REPORT INFORMATION
  Report Type: Report from Study
  Country: AU (occurrence: AU)
  Receive Date: 20190312
  Receipt Date: 20220903
  Transmission Date: 20221026
  Serious: Yes (Hospitalization, Other)
  Sender: FDA-Public Use
  Company Number: PHHY2019AU032348

PATIENT
  Sex: Male

DRUGS (1)
  1. IMATINIB [Suspect]
     Active Substance: IMATINIB
     Indication: Myeloid leukaemia
     Dosage: UNK UNK, QD
     Route: 048
     Dates: start: 2004, end: 2006

REACTIONS (6)
  - Gastric antral vascular ectasia [Recovered/Resolved]
  - Peripheral vascular disorder [Not Recovered/Not Resolved]
  - Gastrointestinal haemorrhage [Unknown]
  - Renal impairment [Unknown]
  - Hypertension [Not Recovered/Not Resolved]
  - Drug intolerance [Unknown]

NARRATIVE: CASE EVENT DATE: 20040101
